FAERS Safety Report 13900064 (Version 1)
Quarter: 2017Q3

REPORT INFORMATION
  Report Type: Report from Study
  Country: JP (occurrence: JP)
  Receive Date: 20170824
  Receipt Date: 20170824
  Transmission Date: 20171127
  Serious: Yes (Other)
  Sender: FDA-Public Use
  Company Number: JP-TEVA-799109ROM

PATIENT
  Age: 68 Year
  Sex: Male

DRUGS (3)
  1. CETUXIMAB. [Suspect]
     Active Substance: CETUXIMAB
     Indication: SQUAMOUS CELL CARCINOMA OF PHARYNX
     Dosage: WEEK 1: 400MG/M2
     Route: 065
  2. CETUXIMAB. [Suspect]
     Active Substance: CETUXIMAB
     Indication: SQUAMOUS CELL CARCINOMA OF PHARYNX
     Dosage: SUBSEQUENT WEEKS: 250MG/M2, WEEKLY
     Route: 065
  3. DOCETAXEL. [Suspect]
     Active Substance: DOCETAXEL
     Indication: SQUAMOUS CELL CARCINOMA OF PHARYNX
     Dosage: 15 MG/M2, WEEKLY
     Route: 065

REACTIONS (2)
  - Stomatitis [Unknown]
  - Radiation skin injury [Unknown]
